FAERS Safety Report 12502711 (Version 1)
Quarter: 2016Q2

REPORT INFORMATION
  Report Type: Spontaneous
  Country: JP (occurrence: JP)
  Receive Date: 20160628
  Receipt Date: 20160628
  Transmission Date: 20160815
  Serious: Yes (Other)
  Sender: FDA-Public Use
  Company Number: JP-ALVOGEN-2016-ALVOGEN-025255

PATIENT
  Age: 80 Year
  Sex: Female

DRUGS (5)
  1. TOREMIFENE [Concomitant]
     Active Substance: TOREMIFENE
     Indication: BREAST CANCER RECURRENT
     Dosage: FOR 1 YEAR AND 5 MONTHS
  2. FULVESTRANT [Concomitant]
     Active Substance: FULVESTRANT
     Indication: BREAST CANCER RECURRENT
  3. ERIBULIN [Concomitant]
     Active Substance: ERIBULIN
     Indication: MALIGNANT PLEURAL EFFUSION
  4. EXEMESTANE. [Suspect]
     Active Substance: EXEMESTANE
     Indication: BREAST CANCER RECURRENT
     Dosage: FOR 1 YEAR AND 5 MONTHS
  5. EVEROLIMUS [Suspect]
     Active Substance: EVEROLIMUS
     Indication: BREAST CANCER RECURRENT

REACTIONS (4)
  - Melaena [Recovering/Resolving]
  - Diarrhoea [Recovering/Resolving]
  - Interstitial lung disease [Recovering/Resolving]
  - Stomatitis [Recovering/Resolving]
